FAERS Safety Report 9126664 (Version 5)
Quarter: 2013Q3

REPORT INFORMATION
  Report Type: Report from Study
  Country: BR (occurrence: BR)
  Receive Date: 20130117
  Receipt Date: 20130823
  Transmission Date: 20140515
  Serious: Yes (Life-Threatening, Hospitalization, Other)
  Sender: FDA-Public Use
  Company Number: BR-ROCHE-1179434

PATIENT
  Age: 59 Year
  Sex: Female
  Weight: 74 kg

DRUGS (10)
  1. MABTHERA [Suspect]
     Indication: RHEUMATOID ARTHRITIS
     Route: 065
     Dates: start: 20120531, end: 20120615
  2. MABTHERA [Suspect]
     Route: 065
  3. TILATIL [Suspect]
     Indication: PRODUCT USED FOR UNKNOWN INDICATION
     Route: 065
  4. PREDNISONE [Suspect]
     Indication: RHEUMATOID ARTHRITIS
     Route: 048
     Dates: start: 2006
  5. RANITIDINE [Concomitant]
     Route: 065
  6. ACETYLSALICYLIC ACID [Concomitant]
     Route: 065
  7. PLAVIX [Concomitant]
     Route: 065
  8. LIPITOR [Concomitant]
     Route: 065
  9. ENALAPRIL [Concomitant]
     Route: 065
  10. METHOTREXATE [Concomitant]
     Indication: RHEUMATOID ARTHRITIS
     Route: 048
     Dates: start: 2006

REACTIONS (9)
  - Myocardial infarction [Recovered/Resolved with Sequelae]
  - Infarction [Recovered/Resolved]
  - Arterial occlusive disease [Recovering/Resolving]
  - Decreased appetite [Unknown]
  - Breast mass [Not Recovered/Not Resolved]
  - Drug hypersensitivity [Unknown]
  - Weight decreased [Not Recovered/Not Resolved]
  - Abdominal pain upper [Unknown]
  - Blood cholesterol increased [Unknown]
